FAERS Safety Report 7186875-4 (Version None)
Quarter: 2010Q4

REPORT INFORMATION
  Report Type: 
  Country: None (occurrence: None)
  Receive Date: 20101222
  Receipt Date: 20101216
  Transmission Date: 20110411
  Serious: Yes (Other)
  Sender: FDA-Public Use
  Company Number: B0690528A

PATIENT
  Sex: Female
  Weight: 32 kg

DRUGS (1)
  1. AMOXYCILLIN TRIHYDRATE + POTASSIUM CLAVULANATE [Suspect]
     Indication: CYSTITIS
     Dosage: 1TAB THREE TIMES PER DAY
     Route: 065
     Dates: start: 20101115, end: 20101122

REACTIONS (1)
  - TENDONITIS [None]
